FAERS Safety Report 14489906 (Version 1)
Quarter: 2018Q1

REPORT INFORMATION
  Report Type: Spontaneous
  Country: IN (occurrence: IN)
  Receive Date: 20180206
  Receipt Date: 20180206
  Transmission Date: 20180509
  Serious: Yes (Hospitalization, Other)
  Sender: FDA-Public Use
  Company Number: IN-CIPLA LTD.-2018IN03432

PATIENT

DRUGS (2)
  1. OXALIPLATIN. [Suspect]
     Active Substance: OXALIPLATIN
     Indication: COLON CANCER METASTATIC
     Dosage: UNK, 3 CYCLES
  2. CAPECITABINE. [Suspect]
     Active Substance: CAPECITABINE
     Indication: COLON CANCER METASTATIC
     Dosage: UNK

REACTIONS (4)
  - Diarrhoea [Recovering/Resolving]
  - Laryngospasm [Recovering/Resolving]
  - Abdominal pain [Unknown]
  - Vomiting [Unknown]
